FAERS Safety Report 7548225-0 (Version None)
Quarter: 2011Q2

REPORT INFORMATION
  Report Type: 
  Country: None (occurrence: None)
  Receive Date: 20110615
  Receipt Date: 20110601
  Transmission Date: 20111010
  Serious: Yes (Death, Other)
  Sender: FDA-Public Use
  Company Number: US-BAYER-2011-009321

PATIENT
  Age: 72 Year
  Sex: Male
  Weight: 90.703 kg

DRUGS (8)
  1. MILRINONE [Concomitant]
     Dosage: 5 MG, UNK
     Route: 042
     Dates: start: 20040412, end: 20040412
  2. TRASYLOL [Suspect]
     Indication: AORTIC VALVE REPLACEMENT
     Dosage: 200ML LOADING DOSE FOLLOWED BY CONTINUOUS INFUSION AT 50ML/HOUR
     Dates: start: 20040402, end: 20040412
  3. HEPARIN [Concomitant]
     Dosage: 40000UNITS
     Route: 042
     Dates: start: 20040412, end: 20040412
  4. LOPRESSOR [Concomitant]
     Dosage: 25 MG, UNK
     Route: 048
  5. VANCOMYCIN [Concomitant]
     Dosage: 1 G, UNK
     Dates: start: 20040412, end: 20040412
  6. MANNITOL [Concomitant]
     Dosage: 12.5 G, UNK
     Route: 042
     Dates: start: 20040412, end: 20040412
  7. TRASYLOL [Suspect]
     Indication: CORONARY ARTERY BYPASS
  8. AMIODARONE HCL [Concomitant]
     Dosage: 300 MG, UNK
     Route: 042
     Dates: start: 20040412, end: 20040412

REACTIONS (13)
  - RENAL FAILURE [None]
  - FEAR OF DEATH [None]
  - PSYCHIATRIC SYMPTOM [None]
  - INJURY [None]
  - RENAL INJURY [None]
  - ANXIETY [None]
  - FEAR [None]
  - PAIN [None]
  - UNEVALUABLE EVENT [None]
  - DEPRESSION [None]
  - MULTI-ORGAN FAILURE [None]
  - EMOTIONAL DISTRESS [None]
  - NERVOUSNESS [None]
